FAERS Safety Report 5841155-1 (Version None)
Quarter: 2008Q3

REPORT INFORMATION
  Report Type: 
  Country: None (occurrence: None)
  Receive Date: 20080807
  Receipt Date: 20080807
  Transmission Date: 20090109
  Serious: Yes (Other)
  Sender: FDA-Public Use
  Company Number: None

PATIENT
  Age: 55 Year
  Sex: Female
  Weight: 81.6475 kg

DRUGS (1)
  1. CIPRO [Suspect]
     Indication: KIDNEY INFECTION

REACTIONS (3)
  - FALL [None]
  - TENDON RUPTURE [None]
  - TENDONITIS [None]
